FAERS Safety Report 6417587-X (Version None)
Quarter: 2009Q4

REPORT INFORMATION
  Report Type: 
  Country: None (occurrence: None)
  Receive Date: 20091028
  Receipt Date: 20091020
  Transmission Date: 20100525
  Serious: Yes (Life-Threatening, Hospitalization, Disabling)
  Sender: FDA-Public Use
  Company Number: GB-ROCHE-663707

PATIENT
  Age: 51 Year
  Sex: Female

DRUGS (4)
  1. TAMIFLU [Suspect]
     Indication: INFLUENZA
     Route: 065
     Dates: start: 20090801, end: 20090905
  2. AMOXICILLIN [Concomitant]
  3. SERETIDE [Concomitant]
  4. SPIRIVA [Concomitant]

REACTIONS (1)
  - PANCREATITIS [None]
